FAERS Safety Report 9073959 (Version 1)
Quarter: 2013Q1

REPORT INFORMATION
  Report Type: Report from Study
  Country: US (occurrence: US)
  Receive Date: 20130128
  Receipt Date: 20130128
  Transmission Date: 20140127
  Serious: No
  Sender: FDA-Public Use
  Company Number: US-ABBOTT-12P-163-0917960-00

PATIENT
  Age: 53 Year
  Sex: Female

DRUGS (26)
  1. HUMIRA 40 MG/0.8 ML PEN [Suspect]
     Indication: RHEUMATOID ARTHRITIS
     Dates: start: 20120308
  2. SUDAFED [Concomitant]
     Indication: SINUS DISORDER
     Route: 048
     Dates: start: 2003
  3. NASONEX [Concomitant]
     Indication: SINUS DISORDER
     Dosage: 1 SPRAY IN EACH NOSTRIL DAILY
     Dates: start: 2003
  4. ADVAIR [Concomitant]
     Indication: ASTHMA
     Dosage: 500/50 X 4 PUFFS TWICE DAILY
  5. PROAIR [Concomitant]
     Indication: HYPERSENSITIVITY
     Dates: start: 2003
  6. PROAIR [Concomitant]
     Indication: ASTHMA
  7. COMBIVENT [Concomitant]
     Indication: ASTHMA
     Dates: start: 2003
  8. BUPROPION SR [Concomitant]
     Indication: ANXIETY
     Route: 048
     Dates: start: 2003
  9. BUPROPION SR [Concomitant]
     Indication: PANIC REACTION
  10. PAROXETINE [Concomitant]
     Indication: ANXIETY
     Route: 048
     Dates: start: 2003
  11. PAROXETINE [Concomitant]
     Indication: PANIC REACTION
  12. FAMOTIDINE [Concomitant]
     Indication: GASTRIC DISORDER
     Route: 048
     Dates: start: 2003
  13. METOCLOPRAMIDE [Concomitant]
     Indication: GASTRIC DISORDER
     Dosage: 10 MG DAILY
     Route: 048
  14. LORATADINE [Concomitant]
     Indication: GASTRIC DISORDER
     Dosage: 10 MG DAILY
     Dates: start: 2003
  15. PRAMIPEXOLE [Concomitant]
     Indication: INSOMNIA
     Dosage: AT BEDTIME
     Route: 048
     Dates: start: 2003
  16. CYCLOBENZAPRINE [Concomitant]
     Indication: MUSCLE SPASMS
     Route: 048
  17. GABAPENTIN [Concomitant]
     Indication: RESTLESS LEGS SYNDROME
     Route: 048
     Dates: start: 2006
  18. PREDNISONE [Concomitant]
     Indication: ARTHRITIS
     Dosage: 5 MG DAILY
     Route: 048
     Dates: start: 2006
  19. FOLIC ACID [Concomitant]
     Indication: ARTHRITIS
     Dosage: 1 MG DAILY
     Route: 048
     Dates: start: 2006
  20. TRAMADOL [Concomitant]
     Indication: ARTHRITIS
     Dosage: 50 MG X 2 IN AM AND 2 IN PM DAILY
     Route: 048
     Dates: start: 2006
  21. GENERLAC [Concomitant]
     Indication: GASTROINTESTINAL MOTILITY DISORDER
     Dosage: 10 MG/15 ML X 3 TEASPOONS TWICE DAILY
     Dates: start: 2007
  22. METHOTREXATE [Concomitant]
     Indication: ARTHRITIS
     Dosage: 2.5 MG X 8 TABLETS EVERY OTHER WEEK
     Route: 048
  23. BETHANECHOL [Concomitant]
     Indication: URINARY TRACT DISORDER
     Route: 048
  24. VESICARE [Concomitant]
     Indication: URINARY TRACT DISORDER
     Dosage: 5 MG DAILY
     Route: 048
  25. VAGIFEM [Concomitant]
     Indication: BLOOD OESTROGEN DECREASED
     Dosage: AT BEDTIME
     Dates: start: 201112
  26. LEFLUNOMIDE [Concomitant]
     Indication: ARTHRITIS
     Dosage: 10 MG DAILY
     Route: 048
     Dates: start: 201202

REACTIONS (4)
  - Injection site reaction [Not Recovered/Not Resolved]
  - Injection site erythema [Unknown]
  - Injection site warmth [Unknown]
  - Pruritus generalised [Unknown]
